FAERS Safety Report 24868240 (Version 1)
Quarter: 2025Q1

REPORT INFORMATION
  Report Type: Spontaneous
  Country: JP (occurrence: JP)
  Receive Date: 20250121
  Receipt Date: 20250121
  Transmission Date: 20250409
  Serious: Yes (Other)
  Sender: MERCK
  Company Number: JP-MSD-M2025-01224

PATIENT
  Sex: Female

DRUGS (4)
  1. KEYTRUDA [Suspect]
     Active Substance: PEMBROLIZUMAB
     Indication: Cervix carcinoma
     Dosage: 200 MILLIGRAM, Q3W
     Route: 041
  2. PACLITAXEL [Suspect]
     Active Substance: PACLITAXEL
     Indication: Cervix carcinoma
     Route: 065
  3. CISPLATIN [Suspect]
     Active Substance: CISPLATIN
     Indication: Cervix carcinoma
     Route: 065
  4. BEVACIZUMAB [Concomitant]
     Active Substance: BEVACIZUMAB
     Route: 065

REACTIONS (3)
  - Protein-losing gastroenteropathy [Unknown]
  - Ascites [Unknown]
  - Oedema peripheral [Unknown]
